FAERS Safety Report 10175783 (Version 3)
Quarter: 2014Q4

REPORT INFORMATION
  Report Type: Spontaneous
  Country: US (occurrence: None)
  Receive Date: 20140416
  Receipt Date: 20141010
  Transmission Date: 20150528
  Serious: Yes (Other)
  Sender: FDA-Public Use
  Company Number: 163-POMAL-14010864

PATIENT
  Age: 64 Year
  Sex: Female
  Weight: 65.8 kg

DRUGS (11)
  1. BACTRIM DS (BACTRIM) [Concomitant]
  2. LACTULOSE. [Concomitant]
     Active Substance: LACTULOSE
  3. VALACYCLOVIR (VALACICLOVIR HYDROCHLORIDE) [Concomitant]
  4. OMEPRAZOLE. [Concomitant]
     Active Substance: OMEPRAZOLE
  5. SULFAMETHOXAZOLE [Concomitant]
     Active Substance: SULFAMETHOXAZOLE
  6. MIRTAZAPINE. [Concomitant]
     Active Substance: MIRTAZAPINE
  7. POMALYST [Suspect]
     Active Substance: POMALIDOMIDE
     Indication: PLASMA CELL MYELOMA
     Dosage: 3 MG, 21 IN 21 D
     Route: 048
     Dates: start: 20130615
  8. KLOR-CON (POTASSIUM CHLORIDE) [Concomitant]
  9. DEXAMETHASONE (DEXAMETHASONE) [Concomitant]
     Active Substance: DEXAMETHASONE
  10. SIMVASTATIN. [Concomitant]
     Active Substance: SIMVASTATIN
  11. FUROSEMIDE. [Concomitant]
     Active Substance: FUROSEMIDE

REACTIONS (8)
  - Diarrhoea [None]
  - Fatigue [None]
  - Mobility decreased [None]
  - Somnolence [None]
  - Dyspnoea [None]
  - Dizziness [None]
  - Constipation [None]
  - Respiratory rate decreased [None]

NARRATIVE: CASE EVENT DATE: 20130616
